FAERS Safety Report 14615194 (Version 10)
Quarter: 2019Q1

REPORT INFORMATION
  Report Type: Spontaneous
  Country: US (occurrence: US)
  Receive Date: 20180308
  Receipt Date: 20190220
  Transmission Date: 20190417
  Serious: Yes (Hospitalization, Other)
  Sender: FDA-Public Use
  Company Number: US-ACTELION-A-NJ2018-168726

PATIENT
  Age: 65 Year
  Sex: Female
  Weight: 70.75 kg

DRUGS (9)
  1. UPTRAVI [Suspect]
     Active Substance: SELEXIPAG
     Dosage: 1600 MCG, BID
     Route: 048
  2. ADEMPAS [Concomitant]
     Active Substance: RIOCIGUAT
     Dosage: 2 MG, TID
     Route: 048
  3. OPSUMIT [Suspect]
     Active Substance: MACITENTAN
     Indication: PULMONARY ARTERIAL HYPERTENSION
     Route: 048
  4. UPTRAVI [Suspect]
     Active Substance: SELEXIPAG
     Indication: PULMONARY ARTERIAL HYPERTENSION
     Dosage: 1000 MCG, BID
     Route: 048
  5. UPTRAVI [Suspect]
     Active Substance: SELEXIPAG
     Dosage: UNK
     Route: 048
  6. WARFARIN [Concomitant]
     Active Substance: WARFARIN
  7. UPTRAVI [Suspect]
     Active Substance: SELEXIPAG
     Dosage: 800 MCG AM 1000 MCG PM
     Route: 048
  8. ADCIRCA [Concomitant]
     Active Substance: TADALAFIL
  9. ADEMPAS [Concomitant]
     Active Substance: RIOCIGUAT
     Dosage: 2.5 MG, TID
     Route: 048

REACTIONS (15)
  - Gastric haemorrhage [Unknown]
  - Gastrointestinal haemorrhage [Unknown]
  - Pneumonia [Recovering/Resolving]
  - Hospitalisation [Not Recovered/Not Resolved]
  - Internal haemorrhage [Unknown]
  - Dialysis [Unknown]
  - Headache [Unknown]
  - Depression [Unknown]
  - Anaemia [Recovering/Resolving]
  - Haemoglobin decreased [Recovering/Resolving]
  - Haematocrit decreased [Recovering/Resolving]
  - Transfusion [Unknown]
  - Haemorrhage [Recovering/Resolving]
  - Anxiety [Unknown]
  - Renal failure [Unknown]
